FAERS Safety Report 6414373-1 (Version None)
Quarter: 2009Q4

REPORT INFORMATION
  Report Type: 
  Country: None (occurrence: None)
  Receive Date: 20091021
  Receipt Date: 20091007
  Transmission Date: 20100525
  Serious: Yes (Hospitalization, Other)
  Sender: FDA-Public Use
  Company Number: 220006M07FRA

PATIENT
  Age: 17 Year
  Sex: Male

DRUGS (2)
  1. SAIZEN [Suspect]
     Indication: GROWTH HORMONE DEFICIENCY
  2. SAIZEN [Suspect]
     Indication: INGUINAL HERNIA

REACTIONS (12)
  - ARACHNOID CYST [None]
  - CEREBRAL VENTRICLE DILATATION [None]
  - FALL [None]
  - GRAND MAL CONVULSION [None]
  - HYPERVENTILATION [None]
  - HYPOGLYCAEMIA [None]
  - LOSS OF CONSCIOUSNESS [None]
  - MALAISE [None]
  - SEDATION [None]
  - SYNCOPE [None]
  - TREATMENT FAILURE [None]
  - TREMOR [None]
